FAERS Safety Report 7112250-4 (Version None)
Quarter: 2010Q4

REPORT INFORMATION
  Report Type: 
  Country: None (occurrence: None)
  Receive Date: 20101119
  Receipt Date: 20100427
  Transmission Date: 20110411
  Serious: No
  Sender: FDA-Public Use
  Company Number: A0856921A

PATIENT
  Age: 69 Year
  Sex: Male

DRUGS (12)
  1. AVODART [Suspect]
     Indication: BENIGN PROSTATIC HYPERPLASIA
     Dosage: 1CAP PER DAY
     Route: 048
     Dates: start: 20070301
  2. ALLOPURINOL [Concomitant]
  3. ASPIRIN [Concomitant]
  4. COREG [Concomitant]
  5. CRESTOR [Concomitant]
  6. LISINOPRIL [Concomitant]
  7. NITROSTAT [Concomitant]
  8. FISH OIL [Concomitant]
  9. VITAMIN D [Concomitant]
  10. VITAMIN B-12 [Concomitant]
  11. METFORMIN HCL [Concomitant]
  12. FOLATE [Concomitant]

REACTIONS (1)
  - MEDICATION RESIDUE [None]
